FAERS Safety Report 15244376 (Version 3)
Quarter: 2018Q3

REPORT INFORMATION
  Report Type: Report from Study
  Country: US (occurrence: US)
  Receive Date: 20180806
  Receipt Date: 20180912
  Transmission Date: 20181010
  Serious: Yes (Hospitalization, Other)
  Sender: FDA-Public Use
  Company Number: US-GILEAD-2018-0353326

PATIENT
  Age: 66 Year
  Sex: Male
  Weight: 94.8 kg

DRUGS (25)
  1. AMLODIPINE [Concomitant]
     Active Substance: AMLODIPINE BESYLATE
  2. IMURAN [Concomitant]
     Active Substance: AZATHIOPRINE
  3. ALBUTEROL SULFATE. [Concomitant]
     Active Substance: ALBUTEROL SULFATE
  4. IPRATROPIUM BROMIDE. [Concomitant]
     Active Substance: IPRATROPIUM BROMIDE
  5. POTASSIUM CHLORIDE. [Concomitant]
     Active Substance: POTASSIUM CHLORIDE
  6. PREDNISONE. [Concomitant]
     Active Substance: PREDNISONE
  7. SILDENAFIL. [Concomitant]
     Active Substance: SILDENAFIL
  8. LISINOPRIL. [Concomitant]
     Active Substance: LISINOPRIL
  9. METOPROLOL TARTRATE. [Concomitant]
     Active Substance: METOPROLOL TARTRATE
  10. SYMBICORT [Concomitant]
     Active Substance: BUDESONIDE\FORMOTEROL FUMARATE DIHYDRATE
  11. ACETAMINOPHEN. [Concomitant]
     Active Substance: ACETAMINOPHEN
  12. FLUTICASONE. [Concomitant]
     Active Substance: FLUTICASONE
  13. SENNA                              /00142201/ [Concomitant]
     Active Substance: SENNA LEAF
  14. MORPHINE                           /00036302/ [Concomitant]
     Active Substance: MORPHINE
  15. NASONEX [Concomitant]
     Active Substance: MOMETASONE FUROATE
  16. OXYGEN. [Concomitant]
     Active Substance: OXYGEN
  17. UPTRAVI [Concomitant]
     Active Substance: SELEXIPAG
  18. ANORO ELLIPTA [Concomitant]
     Active Substance: UMECLIDINIUM BROMIDE\VILANTEROL TRIFENATATE
  19. FUROSEMIDE. [Concomitant]
     Active Substance: FUROSEMIDE
  20. ASPRIN [Concomitant]
     Active Substance: ASPIRIN
  21. NEXIUM [Concomitant]
     Active Substance: ESOMEPRAZOLE MAGNESIUM
  22. AMBRISENTAN [Suspect]
     Active Substance: AMBRISENTAN
     Indication: PRODUCT USED FOR UNKNOWN INDICATION
     Dosage: 10 MG, UNK
     Route: 065
  23. AZELASTINE. [Concomitant]
     Active Substance: AZELASTINE HYDROCHLORIDE
  24. FIBER [Concomitant]
     Active Substance: PSYLLIUM HUSK
  25. OMEPRAZOLE. [Concomitant]
     Active Substance: OMEPRAZOLE

REACTIONS (4)
  - Anaemia [Unknown]
  - Diabetes mellitus [Unknown]
  - Weight decreased [Unknown]
  - Weight increased [Unknown]
